FAERS Safety Report 16324779 (Version 1)
Quarter: 2019Q2

REPORT INFORMATION
  Report Type: Spontaneous
  Country: US (occurrence: US)
  Receive Date: 20190516
  Receipt Date: 20190516
  Transmission Date: 20190711
  Serious: Yes (Other)
  Sender: FDA-Public Use
  Company Number: None

PATIENT
  Age: 47 Year
  Sex: Male
  Weight: 97.1 kg

DRUGS (1)
  1. ROCURONIUM BROMIDE INJ [Suspect]
     Active Substance: ROCURONIUM BROMIDE
     Indication: ANAESTHESIA
     Dosage: ?          OTHER FREQUENCY:ONCE;?
     Route: 040
     Dates: start: 20190514, end: 20190514

REACTIONS (3)
  - Unwanted awareness during anaesthesia [None]
  - Therapeutic product effect incomplete [None]
  - Anaesthetic complication [None]

NARRATIVE: CASE EVENT DATE: 20190514
